FAERS Safety Report 6316012-7 (Version None)
Quarter: 2009Q3

REPORT INFORMATION
  Report Type: 
  Country: None (occurrence: None)
  Receive Date: 20090820
  Receipt Date: 20090814
  Transmission Date: 20100115
  Serious: Yes (Other)
  Sender: FDA-Public Use
  Company Number: US-JNJFOC-20090805431

PATIENT
  Age: 75 Year
  Sex: Female
  Weight: 55.79 kg

DRUGS (4)
  1. IMODIUM A-D [Suspect]
     Route: 048
  2. IMODIUM A-D [Suspect]
     Indication: DIARRHOEA
     Route: 048
  3. COUMADIN [Concomitant]
     Indication: ANTICOAGULANT THERAPY
  4. TOPROL-XL [Concomitant]
     Indication: CARDIAC DISORDER

REACTIONS (2)
  - EXPIRED DRUG ADMINISTERED [None]
  - INTERNATIONAL NORMALISED RATIO INCREASED [None]
